FAERS Safety Report 9973651 (Version 1)
Quarter: 2014Q1

REPORT INFORMATION
  Report Type: Spontaneous
  Country: GB (occurrence: GB)
  Receive Date: 20140306
  Receipt Date: 20140306
  Transmission Date: 20141002
  Serious: Yes (Hospitalization)
  Sender: FDA-Public Use
  Company Number: GB-SA-2014SA022368

PATIENT
  Age: 63 Year
  Sex: Female

DRUGS (28)
  1. CLEXANE [Suspect]
     Indication: CEREBROVASCULAR DISORDER
     Route: 058
     Dates: start: 20130821, end: 20130902
  2. TOCILIZUMAB [Concomitant]
     Indication: RHEUMATOID ARTHRITIS
     Dosage: FREQUENCY: EVERY 4 WEEKLY?B2016
     Route: 042
     Dates: start: 20120425
  3. SIMVASTATIN [Concomitant]
     Indication: HYPERLIPIDAEMIA
     Route: 048
     Dates: start: 20130627
  4. SIMVASTATIN [Concomitant]
     Indication: HYPERLIPIDAEMIA
     Route: 048
     Dates: start: 20130627
  5. CLOPIDOGREL [Concomitant]
     Indication: ISCHAEMIC STROKE
     Route: 048
     Dates: start: 20111108
  6. ENALAPRIL [Concomitant]
     Indication: HYPERTENSION
     Route: 048
  7. FELODIPINE [Concomitant]
     Indication: HYPERTENSION
     Dosage: DOSE: 10MG (1 IN 1)
     Route: 048
  8. METHOTREXATE [Concomitant]
     Indication: RHEUMATOID ARTHRITIS
     Route: 048
  9. FOLIC ACID [Concomitant]
     Indication: RHEUMATOID ARTHRITIS
     Route: 048
  10. SULPHASALAZINE [Concomitant]
     Indication: RHEUMATOID ARTHRITIS
     Route: 048
  11. DICLOFENAC [Concomitant]
     Indication: RHEUMATOID ARTHRITIS
     Route: 048
     Dates: end: 20130528
  12. LATANOPROST [Concomitant]
     Indication: DRY EYE
     Dosage: FORM: DROP SOLUTION
     Route: 047
     Dates: start: 20120308, end: 20120617
  13. TRIMETHOPRIM [Concomitant]
     Indication: UPPER RESPIRATORY TRACT INFECTION
     Route: 048
     Dates: start: 20120309, end: 20120313
  14. ADALIMUMAB [Concomitant]
     Indication: RHEUMATOID ARTHRITIS
     Dosage: FREQUENCY: 1 IN 2 WEEK
     Route: 058
     Dates: end: 20120321
  15. DICLOFENAC DIETHYLAMINE [Concomitant]
     Dosage: DOSE: 1 OTHER AS NEEDED
     Route: 061
     Dates: start: 20121024
  16. INFLUENZA VACCINE [Concomitant]
     Dosage: DOSE:1 OTHER (SINGLE DOSE)
     Route: 058
     Dates: start: 20121030, end: 20121030
  17. INFLUENZA VACCINE [Concomitant]
     Dosage: DOSE: SINGLE DOSE
     Route: 030
     Dates: start: 201310, end: 201310
  18. CHLORTALIDONE [Concomitant]
     Indication: DYSPNOEA
     Route: 048
     Dates: start: 20130602
  19. TRIAMCINOLONE [Concomitant]
     Indication: ARTHRALGIA
     Route: 014
     Dates: start: 20120912, end: 20120912
  20. TRIAMCINOLONE [Concomitant]
     Indication: MUSCULOSKELETAL PAIN
     Route: 014
     Dates: start: 20120912, end: 20120912
  21. TRIAMCINOLONE [Concomitant]
     Indication: ARTHRALGIA
     Route: 014
     Dates: start: 20130522, end: 20130522
  22. TRIAMCINOLONE [Concomitant]
     Indication: MUSCULOSKELETAL PAIN
     Route: 014
     Dates: start: 20130522, end: 20130522
  23. TRIAMCINOLONE [Concomitant]
     Indication: ARTHRALGIA
     Route: 014
     Dates: start: 20130822, end: 20130822
  24. TRIAMCINOLONE [Concomitant]
     Indication: MUSCULOSKELETAL PAIN
     Route: 014
     Dates: start: 20130822, end: 20130822
  25. TRIAMCINOLONE [Concomitant]
     Indication: ARTHRALGIA
     Route: 014
     Dates: start: 20130828, end: 20130828
  26. TRIAMCINOLONE [Concomitant]
     Indication: MUSCULOSKELETAL PAIN
     Route: 014
     Dates: start: 20130828, end: 20130828
  27. DOXAZOSIN [Concomitant]
     Indication: HYPERTENSION
     Route: 048
     Dates: start: 20140123
  28. SANDO K [Concomitant]

REACTIONS (1)
  - Rheumatoid arthritis [Recovered/Resolved]
